FAERS Safety Report 8919447 (Version 1)
Quarter: 2012Q4

REPORT INFORMATION
  Report Type: 
  Country: JP (occurrence: JP)
  Receive Date: 20121121
  Receipt Date: 20121121
  Transmission Date: 20130627
  Serious: Yes (Other)
  Sender: FDA-Public Use
  Company Number: JP-COVIDIEN/TYCO HEALTHCARE/MALLINCKRODT-T201204138

PATIENT

DRUGS (1)
  1. OPTIRAY [Suspect]
     Indication: CATHETERISATION CARDIAC
     Dosage: Mean volume 61.5 +/- 47.9 ml

REACTIONS (1)
  - Renal failure chronic [Unknown]
